FAERS Safety Report 7257980-9 (Version None)
Quarter: 2011Q1

REPORT INFORMATION
  Report Type: 
  Country: None (occurrence: None)
  Receive Date: 20110129
  Receipt Date: 20100612
  Transmission Date: 20110831
  Serious: No
  Sender: FDA-Public Use
  Company Number: US-ABBOTT-10P-163-0651397-00

PATIENT
  Age: 62 Year
  Sex: Female

DRUGS (10)
  1. LEXAPRO [Concomitant]
     Indication: DEPRESSION
  2. LORAZEPAM [Concomitant]
     Indication: ANXIETY
     Dosage: THREE TIMES A DAY AS NEEDED
  3. OXYCONTIN [Concomitant]
     Indication: PAIN
     Dosage: TWICE DAILY AS NEEDED
  4. HUMIRA [Suspect]
     Indication: RHEUMATOID ARTHRITIS
     Dates: start: 20100529
  5. ATENOLOL [Concomitant]
     Indication: HYPERTENSION
  6. PREDNISONE [Concomitant]
     Indication: RHEUMATOID ARTHRITIS
  7. LISINOPRIL AND HYDROCHLOROTHIAZIDE [Concomitant]
     Indication: HYPERTENSION
     Dosage: 20-12.5MG DAILY
  8. PERCOCET [Concomitant]
     Indication: PAIN
     Dosage: 10-325MG AS NEEDED
  9. AMLODIPINE [Concomitant]
     Indication: HYPERTENSION
  10. ZOLPIDEM PARTRATE [Concomitant]
     Indication: INSOMNIA
     Dosage: BEDTIME

REACTIONS (2)
  - INJECTION SITE RASH [None]
  - RASH MACULAR [None]
